FAERS Safety Report 14370939 (Version 2)
Quarter: 2018Q1

REPORT INFORMATION
  Report Type: Spontaneous
  Country: US (occurrence: US)
  Receive Date: 20180110
  Receipt Date: 20180118
  Transmission Date: 20180509
  Serious: No
  Sender: FDA-Public Use
  Company Number: US-BIOGEN-2018BI00507879

PATIENT
  Age: 56 Year
  Sex: Female

DRUGS (1)
  1. AVONEX [Suspect]
     Active Substance: INTERFERON BETA-1A
     Indication: MULTIPLE SCLEROSIS
     Route: 065
     Dates: start: 20120712

REACTIONS (5)
  - Blood pressure increased [Unknown]
  - Lung disorder [Recovered/Resolved]
  - Lung infection [Unknown]
  - Stress [Unknown]
  - Product storage error [Unknown]

NARRATIVE: CASE EVENT DATE: 20180111
